FAERS Safety Report 12532109 (Version 3)
Quarter: 2016Q3

REPORT INFORMATION
  Report Type: Spontaneous
  Country: GB (occurrence: GB)
  Receive Date: 20160706
  Receipt Date: 20160801
  Transmission Date: 20161109
  Serious: Yes (Other)
  Sender: FDA-Public Use
  Company Number: GB-WATSON-2016-14465

PATIENT
  Age: 41 Year
  Sex: Female

DRUGS (7)
  1. TRANYLCYPROMINE [Suspect]
     Active Substance: TRANYLCYPROMINE
     Indication: PRODUCT USED FOR UNKNOWN INDICATION
     Dosage: UNK
     Route: 065
  2. PAROXETINE. [Suspect]
     Active Substance: PAROXETINE
     Indication: DEPRESSION
     Dosage: 30 MG, Q24H
     Route: 065
     Dates: start: 20001127, end: 2001
  3. PAROXETINE. [Suspect]
     Active Substance: PAROXETINE
     Dosage: 30 MG, Q24H
     Route: 065
     Dates: start: 20010126, end: 20010608
  4. SEROXAT [Suspect]
     Active Substance: PAROXETINE HYDROCHLORIDE
     Indication: DEPRESSION
     Dosage: 20 MG, UNKNOWN
     Route: 005
     Dates: start: 20001127, end: 20010608
  5. PAROXETINE. [Suspect]
     Active Substance: PAROXETINE
     Dosage: 20 MG, Q24H
     Dates: start: 20001127, end: 20010608
  6. SEROXAT [Suspect]
     Active Substance: PAROXETINE HYDROCHLORIDE
     Dosage: 30 MG, UNKNOWN
     Route: 065
  7. PREDNISOLONE (UNKNOWN) [Suspect]
     Active Substance: PREDNISOLONE
     Indication: ASTHMA
     Dosage: UNK
     Route: 065

REACTIONS (19)
  - Condition aggravated [Unknown]
  - Dizziness [Unknown]
  - Nausea [Unknown]
  - Feeling cold [Unknown]
  - Anger [Unknown]
  - Vomiting [Unknown]
  - Hyperhidrosis [Unknown]
  - Hot flush [Unknown]
  - Dyssomnia [Unknown]
  - Weight increased [Unknown]
  - Suicidal ideation [Unknown]
  - Obsessive-compulsive disorder [Unknown]
  - Headache [Unknown]
  - Drug withdrawal syndrome [Unknown]
  - Muscle spasms [Unknown]
  - Mood swings [Unknown]
  - Hypoaesthesia [Unknown]
  - Paraesthesia [Unknown]
  - Anxiety [Unknown]

NARRATIVE: CASE EVENT DATE: 200104
